FAERS Safety Report 8184507-X (Version None)
Quarter: 2012Q1

REPORT INFORMATION
  Report Type: 
  Country: None (occurrence: None)
  Receive Date: 20120305
  Receipt Date: 20120229
  Transmission Date: 20120608
  Serious: Yes (Hospitalization)
  Sender: FDA-Public Use
  Company Number: US-GILEAD-2012-0050482

PATIENT
  Sex: Female

DRUGS (9)
  1. NORVASC [Concomitant]
  2. LASIX [Concomitant]
  3. TENORMIN [Concomitant]
  4. LANTUS [Concomitant]
  5. DIOVAN [Concomitant]
  6. LETAIRIS [Suspect]
     Indication: SARCOIDOSIS
  7. GLIPIZIDE [Concomitant]
  8. LETAIRIS [Suspect]
     Indication: PULMONARY FIBROSIS
  9. LETAIRIS [Suspect]
     Indication: PULMONARY HYPERTENSION
     Dosage: UNK
     Route: 048

REACTIONS (2)
  - BRONCHITIS [None]
  - PNEUMONIA [None]
